FAERS Safety Report 12000619 (Version 1)
Quarter: 2016Q1

REPORT INFORMATION
  Report Type: Spontaneous
  Country: US (occurrence: US)
  Receive Date: 20160204
  Receipt Date: 20160204
  Transmission Date: 20160526
  Serious: No
  Sender: FDA-Public Use
  Company Number: US-PFIZER INC-2016058033

PATIENT
  Age: 73 Year
  Sex: Female

DRUGS (14)
  1. NITROFURANTOIN (MONOHYDRATE/MACROCRYSTALS) [Concomitant]
     Active Substance: NITROFURANTOIN\NITROFURANTOIN MONOHYDRATE
     Dosage: UNK
  2. ACYCLOVIR. [Concomitant]
     Active Substance: ACYCLOVIR
     Dosage: UNK
  3. ZOFRAN [Concomitant]
     Active Substance: ONDANSETRON HYDROCHLORIDE
     Dosage: UNK
  4. PRILOSEC [Concomitant]
     Active Substance: OMEPRAZOLE MAGNESIUM
  5. GLUCOSAMINE [Concomitant]
     Active Substance: GLUCOSAMINE
  6. CHONDROITIN [Concomitant]
     Active Substance: CHONDROITIN
  7. PAMIDRONATE DISODIUM. [Concomitant]
     Active Substance: PAMIDRONATE DISODIUM
  8. JOINT CITRACAL/VITAMIN D [Concomitant]
     Dosage: UNK
  9. AROMASIN [Concomitant]
     Active Substance: EXEMESTANE
  10. PREDNISONE. [Concomitant]
     Active Substance: PREDNISONE
  11. MIRALAX [Concomitant]
     Active Substance: POLYETHYLENE GLYCOL 3350
     Dosage: UNK
  12. LYRICA [Concomitant]
     Active Substance: PREGABALIN
  13. IBRANCE [Suspect]
     Active Substance: PALBOCICLIB
     Dosage: 125 MG, UNK
     Dates: start: 20160114
  14. CENTRUM SILVER [Concomitant]
     Active Substance: MINERALS\VITAMINS
     Dosage: UNK

REACTIONS (3)
  - Product use issue [Unknown]
  - Fatigue [Unknown]
  - Alopecia [Unknown]
